FAERS Safety Report 14375372 (Version 1)
Quarter: 2018Q1

REPORT INFORMATION
  Report Type: Spontaneous
  Country: US (occurrence: US)
  Receive Date: 20180111
  Receipt Date: 20180111
  Transmission Date: 20180509
  Serious: Yes (Hospitalization, Other)
  Sender: FDA-Public Use
  Company Number: US-GLAXOSMITHKLINE-US2018001503

PATIENT
  Sex: Female

DRUGS (1)
  1. BENLYSTA [Suspect]
     Active Substance: BELIMUMAB
     Indication: SYSTEMIC LUPUS ERYTHEMATOSUS
     Dosage: 200 MG, CYC
     Route: 042
     Dates: start: 2015

REACTIONS (7)
  - Catheter removal [Unknown]
  - Wisdom teeth removal [Unknown]
  - Sepsis [Unknown]
  - Deep vein thrombosis [Unknown]
  - Bronchitis [Unknown]
  - Pyrexia [Unknown]
  - Influenza [Unknown]

NARRATIVE: CASE EVENT DATE: 2017
